FAERS Safety Report 17129787 (Version 1)
Quarter: 2019Q4

REPORT INFORMATION
  Report Type: Spontaneous
  Country: CA (occurrence: CA)
  Receive Date: 20191209
  Receipt Date: 20191209
  Transmission Date: 20200122
  Serious: Yes (Life-Threatening, Other)
  Sender: FDA-Public Use
  Company Number: CA-B.BRAUN MEDICAL INC.-2077617

PATIENT
  Age: 38 Year
  Sex: Female
  Weight: 112 kg

DRUGS (11)
  1. SODIUM CHLORIDE INJECTION USP 0264-7800-09 [Suspect]
     Active Substance: SODIUM CHLORIDE
     Indication: PRODUCT USED FOR UNKNOWN INDICATION
     Route: 042
  2. ADVIL [Concomitant]
     Active Substance: IBUPROFEN
  3. FLOVENT [Concomitant]
     Active Substance: FLUTICASONE PROPIONATE
  4. VENTOLIN [Concomitant]
     Active Substance: ALBUTEROL SULFATE
  5. DALACIN C PHOSPHATE [Suspect]
     Active Substance: CLINDAMYCIN PHOSPHATE
     Route: 042
  6. BISOPROLOL [Concomitant]
     Active Substance: BISOPROLOL
  7. TYLENOL [Concomitant]
     Active Substance: ACETAMINOPHEN
  8. AMLODIPINE [Concomitant]
     Active Substance: AMLODIPINE BESYLATE
  9. CANDESARTAN CILEXETIL. [Concomitant]
     Active Substance: CANDESARTAN CILEXETIL
  10. CLAVULIN [Concomitant]
     Active Substance: AMOXICILLIN\CLAVULANATE POTASSIUM
  11. MONTELUKAST [Concomitant]
     Active Substance: MONTELUKAST SODIUM

REACTIONS (11)
  - Loss of consciousness [None]
  - Neuromuscular blockade [None]
  - Pulmonary oedema [None]
  - Heart rate increased [None]
  - Acute respiratory failure [None]
  - Anaphylactic reaction [None]
  - Blood pressure increased [None]
  - Endotracheal intubation [None]
  - Dyspnoea [None]
  - Oxygen saturation decreased [None]
  - Throat irritation [None]
